FAERS Safety Report 16228065 (Version 5)
Quarter: 2021Q2

REPORT INFORMATION
  Report Type: Spontaneous
  Country: US (occurrence: US)
  Receive Date: 20190423
  Receipt Date: 20210409
  Transmission Date: 20210716
  Serious: Yes (Hospitalization, Other)
  Sender: FDA-Public Use
  Company Number: US-PFIZER INC-2019172590

PATIENT
  Age: 63 Year
  Sex: Male
  Weight: 117.93 kg

DRUGS (2)
  1. LYRICA [Suspect]
     Active Substance: PREGABALIN
     Indication: NEUROPATHY PERIPHERAL
     Dosage: UNK
     Dates: start: 2015
  2. LYRICA [Suspect]
     Active Substance: PREGABALIN
     Dosage: 75 MG, 2X/DAY (ONE IN THE MORNING AND ONE AT NIGHT)
     Dates: start: 2017

REACTIONS (10)
  - Fall [Unknown]
  - Spinal stenosis [Unknown]
  - Haematoma [Unknown]
  - Meniscus injury [Unknown]
  - Coronary artery occlusion [Unknown]
  - Hypogammaglobulinaemia [Unknown]
  - COVID-19 [Unknown]
  - Arthropathy [Unknown]
  - Amnesia [Unknown]
  - Headache [Unknown]

NARRATIVE: CASE EVENT DATE: 2018
